FAERS Safety Report 21905441 (Version 3)
Quarter: 2023Q2

REPORT INFORMATION
  Report Type: Report from Study
  Country: FR (occurrence: FR)
  Receive Date: 20230124
  Receipt Date: 20230606
  Transmission Date: 20230722
  Serious: Yes (Hospitalization)
  Sender: FDA-Public Use
  Company Number: FR-SA-SAC20230119000972

PATIENT
  Age: 55 Year
  Sex: Male
  Weight: 70 kg

DRUGS (13)
  1. ISATUXIMAB [Suspect]
     Active Substance: ISATUXIMAB
     Indication: Plasma cell myeloma
     Dosage: 10 MG/KG
     Route: 042
     Dates: start: 20220317, end: 20220317
  2. ISATUXIMAB [Suspect]
     Active Substance: ISATUXIMAB
     Dosage: 760 MG
     Route: 042
     Dates: start: 20230103, end: 20230103
  3. CARFILZOMIB [Suspect]
     Active Substance: CARFILZOMIB
     Indication: Plasma cell myeloma
     Dosage: 56 MG/KG
     Dates: start: 20220317, end: 20220317
  4. CARFILZOMIB [Suspect]
     Active Substance: CARFILZOMIB
     Dosage: 100 MG/KG
     Route: 042
     Dates: start: 20230110, end: 20230110
  5. LENALIDOMIDE [Suspect]
     Active Substance: LENALIDOMIDE
     Indication: Plasma cell myeloma
     Dosage: 25 MG
     Dates: start: 20220317, end: 20220317
  6. LENALIDOMIDE [Suspect]
     Active Substance: LENALIDOMIDE
     Dosage: 25 MG, D1, D11
     Route: 048
     Dates: start: 20230103, end: 20230103
  7. DEXAMETHASONE [Suspect]
     Active Substance: DEXAMETHASONE
     Indication: Plasma cell myeloma
     Dosage: UNK
     Dates: start: 20220317, end: 20220317
  8. DEXAMETHASONE [Suspect]
     Active Substance: DEXAMETHASONE
     Dosage: 40 MG, D1, D8, D15, D22
     Route: 048
     Dates: start: 20230103, end: 20230103
  9. DEXAMETHASONE [Suspect]
     Active Substance: DEXAMETHASONE
     Dosage: 40 MG, D1, D8, D15, D22
     Route: 048
     Dates: start: 20230110, end: 20230110
  10. ATOVAQUONE [Concomitant]
     Active Substance: ATOVAQUONE
  11. VALACYCLOVIR HYDROCHLORIDE [Concomitant]
     Active Substance: VALACYCLOVIR HYDROCHLORIDE
     Dosage: 500 MG, BID
  12. KARDEGIC [Concomitant]
     Active Substance: ASPIRIN DL-LYSINE
     Dosage: 75 MG, QD
  13. CETIRIZINE [Concomitant]
     Active Substance: CETIRIZINE HYDROCHLORIDE
     Dosage: UNK UNK, QD

REACTIONS (1)
  - Pseudomonas infection [Recovered/Resolved]

NARRATIVE: CASE EVENT DATE: 20230116
